FAERS Safety Report 16980084 (Version 4)
Quarter: 2020Q3

REPORT INFORMATION
  Report Type: Spontaneous
  Country: US (occurrence: US)
  Receive Date: 20191031
  Receipt Date: 20200707
  Transmission Date: 20201102
  Serious: Yes (Other)
  Sender: FDA-Public Use
  Company Number: US-009507513-1910USA014941

PATIENT
  Age: 3 Year
  Sex: Male

DRUGS (2)
  1. TRAMETINIB [Suspect]
     Active Substance: TRAMETINIB
     Indication: ASTROCYTOMA
     Dosage: MONOTHERAPY
  2. TEMODAR [Suspect]
     Active Substance: TEMOZOLOMIDE
     Indication: ASTROCYTOMA
     Dosage: MONOTHERAPY X 2 CYCLES
     Route: 048
     Dates: start: 201908, end: 201909

REACTIONS (4)
  - Metastases to spine [Unknown]
  - Product prescribing issue [Unknown]
  - Treatment failure [Unknown]
  - Developmental delay [Unknown]

NARRATIVE: CASE EVENT DATE: 201908
